FAERS Safety Report 10205054 (Version 1)
Quarter: 2014Q2

REPORT INFORMATION
  Report Type: Spontaneous
  Country: US (occurrence: US)
  Receive Date: 20140529
  Receipt Date: 20140529
  Transmission Date: 20141212
  Serious: No
  Sender: FDA-Public Use
  Company Number: US-BAYER-2014-079784

PATIENT
  Age: 95 Year
  Sex: Female
  Weight: 58.5 kg

DRUGS (1)
  1. ALEVE TABLET [Suspect]
     Indication: BACK PAIN
     Dosage: 2 DF, BID
     Route: 048
     Dates: start: 20140523, end: 20140526

REACTIONS (2)
  - Foreign body [Recovered/Resolved]
  - Extra dose administered [Recovered/Resolved]
